FAERS Safety Report 10180316 (Version 1)
Quarter: 2014Q2

REPORT INFORMATION
  Report Type: Spontaneous
  Country: US (occurrence: US)
  Receive Date: 20140519
  Receipt Date: 20140519
  Transmission Date: 20141212
  Serious: No
  Sender: FDA-Public Use
  Company Number: US-AMGEN INC.-USASP2013083046

PATIENT
  Age: 86 Year
  Sex: Female

DRUGS (6)
  1. PROLIA [Suspect]
     Indication: OSTEOPOROSIS POSTMENOPAUSAL
     Dosage: UNK, Q6MO
     Route: 065
     Dates: start: 201205
  2. B 12 [Concomitant]
  3. FOLIC ACID [Concomitant]
     Dosage: 2000 MUG, UNK
  4. SEREVENT [Concomitant]
  5. LOSARTAN [Concomitant]
  6. HYDROCHLOROTHIAZIDE [Concomitant]

REACTIONS (5)
  - Back pain [Unknown]
  - Sciatica [Unknown]
  - Eczema [Unknown]
  - Hypocalcaemia [Unknown]
  - Throat tightness [Unknown]
